FAERS Safety Report 8382066-X (Version None)
Quarter: 2012Q2

REPORT INFORMATION
  Report Type: 
  Country: None (occurrence: None)
  Receive Date: 20120522
  Receipt Date: 20120511
  Transmission Date: 20120825
  Serious: Yes (Other)
  Sender: FDA-Public Use
  Company Number: 2012AP001430

PATIENT
  Age: 74 Year
  Sex: Female

DRUGS (6)
  1. CALCICHEW D3 (LEKOVIT CA) [Concomitant]
  2. ASPIRIN [Concomitant]
  3. ALENDRONATE SODIUM [Suspect]
     Indication: OSTEOPOROSIS
     Dosage: 70 MG;PO
     Route: 048
     Dates: start: 20090202, end: 20120420
  4. CANDESARTAN CILEXETIL [Concomitant]
  5. BENDROFLUAZIDE (BENDROFLUMETHIAZIDE) [Concomitant]
  6. LEVOTHYROXINE SODIUM [Concomitant]

REACTIONS (2)
  - VISION BLURRED [None]
  - INFLAMMATION [None]
